FAERS Safety Report 18319229 (Version 1)
Quarter: 2020Q3

REPORT INFORMATION
  Report Type: Spontaneous
  Country: FR (occurrence: FR)
  Receive Date: 20200928
  Receipt Date: 20200928
  Transmission Date: 20201103
  Serious: Yes (Death, Hospitalization)
  Sender: FDA-Public Use
  Company Number: FR-TEVA-2020-FR-1832890

PATIENT
  Age: 70 Year
  Sex: Male

DRUGS (1)
  1. OLANZAPINE. [Suspect]
     Active Substance: OLANZAPINE
     Indication: PSYCHOTIC DISORDER
     Route: 065

REACTIONS (10)
  - Hyperlactacidaemia [Unknown]
  - Constipation [Unknown]
  - Abdominal distension [Unknown]
  - Collateral circulation [Unknown]
  - Hypotension [Unknown]
  - Anuria [Unknown]
  - Faecaloma [Fatal]
  - Multiple organ dysfunction syndrome [Fatal]
  - Abdominal pain [Unknown]
  - Acute kidney injury [Unknown]
